FAERS Safety Report 6252085-8 (Version None)
Quarter: 2009Q2

REPORT INFORMATION
  Report Type: 
  Country: None (occurrence: None)
  Receive Date: 20090630
  Receipt Date: 20090616
  Transmission Date: 20091009
  Serious: Yes (Other)
  Sender: FDA-Public Use
  Company Number: CA-ROCHE-638864

PATIENT
  Sex: Female

DRUGS (2)
  1. TAMIFLU [Suspect]
     Indication: INFLUENZA
     Route: 048
     Dates: start: 20090612, end: 20090613
  2. LORAZEPAM [Concomitant]
     Dosage: FREQUENCY: SINGLE DOSE
     Route: 048
     Dates: start: 20090612, end: 20090612

REACTIONS (9)
  - ASTHENIA [None]
  - BALANCE DISORDER [None]
  - CONFUSIONAL STATE [None]
  - COORDINATION ABNORMAL [None]
  - DELIRIUM [None]
  - DIPLOPIA [None]
  - DISORIENTATION [None]
  - JOINT SPRAIN [None]
  - SPEECH DISORDER [None]
